FAERS Safety Report 13504244 (Version 1)
Quarter: 2017Q2

REPORT INFORMATION
  Report Type: Spontaneous
  Country: GB (occurrence: GB)
  Receive Date: 20170502
  Receipt Date: 20170502
  Transmission Date: 20170830
  Serious: Yes (Other)
  Sender: FDA-Public Use
  Company Number: GB-PFIZER INC-2017185373

PATIENT
  Age: 34 Year
  Sex: Male

DRUGS (1)
  1. CRIZOTINIB [Suspect]
     Active Substance: CRIZOTINIB
     Dosage: UNK
     Dates: start: 201404

REACTIONS (3)
  - Neoplasm progression [Unknown]
  - Pulmonary embolism [Unknown]
  - Lung disorder [Unknown]

NARRATIVE: CASE EVENT DATE: 201605
